FAERS Safety Report 5363512-2 (Version None)
Quarter: 2007Q2

REPORT INFORMATION
  Report Type: 
  Country: None (occurrence: None)
  Receive Date: 20070618
  Receipt Date: 20070601
  Transmission Date: 20071010
  Serious: Yes (Hospitalization)
  Sender: FDA-Public Use
  Company Number: 157075ISR

PATIENT
  Age: 69 Year
  Sex: Female

DRUGS (2)
  1. CARBOPLATIN [Suspect]
     Indication: SMALL CELL LUNG CANCER STAGE UNSPECIFIED
     Dosage: (370 MG, CYCLICAL), INTRAVENOUS
     Route: 042
     Dates: start: 20070410, end: 20070410
  2. ETOPOSIDE [Suspect]
     Indication: SMALL CELL LUNG CANCER STAGE UNSPECIFIED
     Dosage: (150 MG, CYCLICAL), INTRAVENOUS
     Route: 042
     Dates: start: 20070410, end: 20070412

REACTIONS (1)
  - NEUTROPENIC SEPSIS [None]
